FAERS Safety Report 25188141 (Version 2)
Quarter: 2025Q2

REPORT INFORMATION
  Report Type: Spontaneous
  Country: FR (occurrence: FR)
  Receive Date: 20250411
  Receipt Date: 20250424
  Transmission Date: 20250717
  Serious: Yes (Other)
  Sender: NOVARTIS
  Company Number: FR-SANDOZ-SDZ2025FR020689

PATIENT
  Age: 3 Decade

DRUGS (9)
  1. IMATINIB [Suspect]
     Active Substance: IMATINIB
     Indication: Gastrointestinal stromal tumour
     Route: 065
  2. IMATINIB [Suspect]
     Active Substance: IMATINIB
     Indication: Metastasis
  3. PEMBROLIZUMAB [Concomitant]
     Active Substance: PEMBROLIZUMAB
     Indication: Gastrointestinal stromal tumour
     Dosage: 200 MG, TIW (4?CYCLES)
     Route: 065
  4. PEMBROLIZUMAB [Concomitant]
     Active Substance: PEMBROLIZUMAB
     Route: 065
  5. PEMBROLIZUMAB [Concomitant]
     Active Substance: PEMBROLIZUMAB
     Route: 065
  6. CISPLATIN [Concomitant]
     Active Substance: CISPLATIN
     Indication: Gastrointestinal stromal tumour
     Dosage: 100 MG/M2, TIW (4?CYCLES)
     Route: 065
  7. CISPLATIN [Concomitant]
     Active Substance: CISPLATIN
     Dosage: 100 MG/M2, TIW (3?CYCLES)
     Route: 065
  8. ETOPOSIDE [Concomitant]
     Active Substance: ETOPOSIDE
     Indication: Gastrointestinal stromal tumour
     Dosage: 100 MG/M2, TIW (4?CYCLES)
     Route: 065
  9. ETOPOSIDE [Concomitant]
     Active Substance: ETOPOSIDE
     Dosage: 100 MG/M2, TIW (3?CYCLES)
     Route: 065

REACTIONS (10)
  - Gastrointestinal stromal tumour [Unknown]
  - Malignant neoplasm progression [Unknown]
  - Metastases to peritoneum [Unknown]
  - Metastases to liver [Unknown]
  - Intestinal obstruction [Unknown]
  - Abdominal pain [Unknown]
  - General physical health deterioration [Unknown]
  - Ascites [Unknown]
  - Metastases to abdominal cavity [Unknown]
  - Drug resistance [Unknown]
